FAERS Safety Report 16001226 (Version 9)
Quarter: 2020Q1

REPORT INFORMATION
  Report Type: Spontaneous
  Country: US (occurrence: US)
  Receive Date: 20190225
  Receipt Date: 20200324
  Transmission Date: 20200409
  Serious: Yes (Other)
  Sender: FDA-Public Use
  Company Number: US-009507513-1902USA003785

PATIENT
  Age: 18 Year
  Sex: Female
  Weight: 92.52 kg

DRUGS (2)
  1. IMPLANON [Suspect]
     Active Substance: ETONOGESTREL
     Indication: ACNE
  2. IMPLANON [Suspect]
     Active Substance: ETONOGESTREL
     Indication: CONTRACEPTION
     Dosage: 1 ROD (68 MG), EVERY 3 YEARS, LEFT ARM
     Route: 059
     Dates: start: 201107

REACTIONS (7)
  - Complication associated with device [Not Recovered/Not Resolved]
  - Product use in unapproved indication [Unknown]
  - Axillary pain [Not Recovered/Not Resolved]
  - Incorrect product administration duration [Unknown]
  - Cervical dysplasia [Unknown]
  - Complication of device removal [Not Recovered/Not Resolved]
  - Device dislocation [Not Recovered/Not Resolved]

NARRATIVE: CASE EVENT DATE: 201107
